FAERS Safety Report 13966477 (Version 2)
Quarter: 2017Q4

REPORT INFORMATION
  Report Type: Spontaneous
  Country: US (occurrence: US)
  Receive Date: 20170913
  Receipt Date: 20171029
  Transmission Date: 20180320
  Serious: No
  Sender: FDA-Public Use
  Company Number: US-009507513-1708USA010130

PATIENT

DRUGS (1)
  1. CLARINEX [Suspect]
     Active Substance: DESLORATADINE
     Dosage: UNK

REACTIONS (1)
  - Product supply issue [Unknown]
